FAERS Safety Report 4632353-3 (Version None)
Quarter: 2005Q2

REPORT INFORMATION
  Report Type: 
  Country: None (occurrence: None)
  Receive Date: 20050411
  Receipt Date: 20050329
  Transmission Date: 20051028
  Serious: Yes (Other)
  Sender: FDA-Public Use
  Company Number: US-SOLVAY-00205000999

PATIENT
  Sex: Female

DRUGS (5)
  1. ESTRATEST [Suspect]
     Indication: HORMONE REPLACEMENT THERAPY
     Dosage: DAILY DOSE:  UNKNOWN
     Route: 048
  2. ESTRATEST H.S. [Suspect]
     Indication: HORMONE REPLACEMENT THERAPY
     Dosage: DAILY DOSE:  UNKNOWN
     Route: 048
  3. PREMARIN [Suspect]
     Indication: HORMONE REPLACEMENT THERAPY
     Dosage: DAILY DOSE:  UNKNOWN
     Route: 048
  4. CLIMARA [Suspect]
     Indication: HORMONE REPLACEMENT THERAPY
     Dosage: DAILY DOSE:  UNKNOWN
     Route: 048
  5. ESTRACE [Suspect]
     Indication: HORMONE REPLACEMENT THERAPY
     Dosage: DAILY DOSE:  UNKNOWN
     Route: 048

REACTIONS (1)
  - OVARIAN CANCER [None]
